FAERS Safety Report 6697163-4 (Version None)
Quarter: 2010Q2

REPORT INFORMATION
  Report Type: 
  Country: None (occurrence: None)
  Receive Date: 20100426
  Receipt Date: 20100415
  Transmission Date: 20101027
  Serious: Yes (Other)
  Sender: FDA-Public Use
  Company Number: CH-PFIZER INC-2010023019

PATIENT
  Age: 45 Year
  Sex: Female
  Weight: 64 kg

DRUGS (1)
  1. CHAMPIX [Suspect]
     Dosage: UNK
     Route: 048
     Dates: start: 20090813, end: 20090820

REACTIONS (5)
  - ABNORMAL DREAMS [None]
  - ATRIAL FIBRILLATION [None]
  - DEPRESSION [None]
  - PALPITATIONS [None]
  - RESPIRATORY TRACT CONGESTION [None]
